FAERS Safety Report 8152219-4 (Version None)
Quarter: 2012Q1

REPORT INFORMATION
  Report Type: 
  Country: None (occurrence: None)
  Receive Date: 20120215
  Receipt Date: 20120215
  Transmission Date: 20120608
  Serious: No
  Sender: FDA-Public Use
  Company Number: None

PATIENT
  Sex: Female

DRUGS (1)
  1. ENBREL [Suspect]
     Dosage: 50MG BI-WEEKLY SUB-Q
     Route: 058
     Dates: start: 20111017, end: 20120110

REACTIONS (3)
  - CYST [None]
  - ARTHRALGIA [None]
  - ABSCESS [None]
